FAERS Safety Report 12092298 (Version 1)
Quarter: 2016Q1

REPORT INFORMATION
  Report Type: Spontaneous
  Country: US (occurrence: None)
  Receive Date: 20160217
  Receipt Date: 20160217
  Transmission Date: 20160526
  Serious: No
  Sender: FDA-Public Use
  Company Number: None

PATIENT
  Age: 50 Year
  Sex: Male

DRUGS (5)
  1. TACROLIMUS. [Suspect]
     Active Substance: TACROLIMUS
     Indication: RENAL TRANSPLANT
     Dosage: 1 MG CAP  3 X Q12H PO
     Route: 048
     Dates: start: 20151015, end: 201602
  2. MYCOPHENOLATE [Suspect]
     Active Substance: MYCOPHENOLIC ACID
     Indication: RENAL TRANSPLANT
     Dosage: 500MG TAB 2 X Q12H  PO
     Route: 048
     Dates: start: 20151015, end: 201602
  3. ENALAPRIL [Concomitant]
     Active Substance: ENALAPRIL
  4. VITAMIN D3 [Concomitant]
     Active Substance: CHOLECALCIFEROL
  5. PREDNISONE. [Concomitant]
     Active Substance: PREDNISONE

REACTIONS (1)
  - Death [None]

NARRATIVE: CASE EVENT DATE: 20150206
